FAERS Safety Report 15009171 (Version 1)
Quarter: 2018Q2

REPORT INFORMATION
  Report Type: Spontaneous
  Country: US (occurrence: US)
  Receive Date: 20180614
  Receipt Date: 20180614
  Transmission Date: 20180711
  Serious: Yes (Hospitalization)
  Sender: FDA-Public Use
  Company Number: US-KITE, A GILEAD COMPANY-2049392

PATIENT
  Age: 25 Year
  Sex: Male
  Weight: 97.6 kg

DRUGS (1)
  1. YESCARTA [Suspect]
     Active Substance: AXICABTAGENE CILOLEUCEL
     Indication: B-CELL LYMPHOMA REFRACTORY
     Route: 042
     Dates: start: 20180530, end: 20180530

REACTIONS (7)
  - Headache [Unknown]
  - Pyrexia [Recovered/Resolved]
  - Dizziness [Unknown]
  - Balance disorder [Unknown]
  - Blood pressure systolic decreased [Recovered/Resolved]
  - C-reactive protein increased [Recovering/Resolving]
  - Nausea [Unknown]

NARRATIVE: CASE EVENT DATE: 20180601
